FAERS Safety Report 13920853 (Version 1)
Quarter: 2017Q3

REPORT INFORMATION
  Report Type: Report from Study
  Country: US (occurrence: US)
  Receive Date: 20170830
  Receipt Date: 20170830
  Transmission Date: 20171127
  Serious: Yes (Other)
  Sender: FDA-Public Use
  Company Number: US-ASTELLAS-2017US033625

PATIENT
  Sex: Female
  Weight: 53 kg

DRUGS (2)
  1. ERLOTINIB [Suspect]
     Active Substance: ERLOTINIB
     Indication: LUNG NEOPLASM MALIGNANT
     Route: 048
     Dates: start: 20091031
  2. ERLOTINIB [Suspect]
     Active Substance: ERLOTINIB
     Dosage: UNK, UNKNOWN FREQ.
     Route: 048

REACTIONS (4)
  - Nasopharyngitis [Not Recovered/Not Resolved]
  - Lymphoma [Not Recovered/Not Resolved]
  - Fall [Unknown]
  - Hypoacusis [Unknown]

NARRATIVE: CASE EVENT DATE: 2010
